FAERS Safety Report 5588187-9 (Version None)
Quarter: 2008Q1

REPORT INFORMATION
  Report Type: 
  Country: None (occurrence: None)
  Receive Date: 20080109
  Receipt Date: 20080109
  Transmission Date: 20080703
  Serious: Yes (Hospitalization)
  Sender: FDA-Public Use
  Company Number: None

PATIENT
  Sex: Male
  Weight: 113 kg

DRUGS (2)
  1. ACYCLOVIR [Suspect]
     Indication: ENCEPHALITIS HERPES
     Dosage: 1100MG  EVERY 12 HOURS  IV BOLUS
     Route: 040
     Dates: start: 20071212, end: 20071226
  2. CADIZEM CD [Concomitant]

REACTIONS (2)
  - DRUG ERUPTION [None]
  - PYREXIA [None]
